FAERS Safety Report 10884405 (Version 1)
Quarter: 2015Q1

REPORT INFORMATION
  Report Type: Spontaneous
  Country: US (occurrence: None)
  Receive Date: 20150226
  Receipt Date: 20150226
  Transmission Date: 20150721
  Serious: No
  Sender: FDA-Public Use
  Company Number: None

PATIENT
  Sex: Female

DRUGS (1)
  1. PRACTI-PRODUCTS [Suspect]
     Active Substance: UNSPECIFIED INGREDIENT
     Route: 042

REACTIONS (3)
  - Infusion related reaction [None]
  - Chills [None]
  - Headache [None]

NARRATIVE: CASE EVENT DATE: 20141224
